FAERS Safety Report 26066915 (Version 1)
Quarter: 2025Q4

REPORT INFORMATION
  Report Type: Spontaneous
  Country: US (occurrence: US)
  Receive Date: 20251119
  Receipt Date: 20251119
  Transmission Date: 20260118
  Serious: Yes (Other)
  Sender: APELLIS PHARMACEUTICALS
  Company Number: US-APELLIS PHARMACEUTICALS-APL-2023-002772

PATIENT

DRUGS (2)
  1. SYFOVRE [Suspect]
     Active Substance: PEGCETACOPLAN
     Indication: Product used for unknown indication
     Dosage: UNK
     Dates: start: 202307
  2. RINVOQ [Concomitant]
     Active Substance: UPADACITINIB
     Indication: Rheumatoid arthritis
     Dosage: UNK

REACTIONS (9)
  - Retinal vasculitis [Not Recovered/Not Resolved]
  - Bullous keratopathy [Recovered/Resolved]
  - Optic disc oedema [Unknown]
  - Retinal haemorrhage [Unknown]
  - Iridocyclitis [Unknown]
  - Visual impairment [Recovered/Resolved]
  - Conjunctival oedema [Unknown]
  - Intraocular pressure increased [Recovered/Resolved]
  - Eye pain [Not Recovered/Not Resolved]

NARRATIVE: CASE EVENT DATE: 20230701
